FAERS Safety Report 10037121 (Version 2)
Quarter: 2014Q1

REPORT INFORMATION
  Report Type: Spontaneous
  Country: DE (occurrence: DE)
  Receive Date: 20140326
  Receipt Date: 20140326
  Transmission Date: 20141002
  Serious: Yes (Hospitalization, Other)
  Sender: FDA-Public Use
  Company Number: DE-ROCHE-1357423

PATIENT
  Age: 77 Year
  Sex: Female

DRUGS (5)
  1. TOCILIZUMAB [Suspect]
     Indication: RHEUMATOID ARTHRITIS
     Dosage: 8 MG/KG
     Route: 042
     Dates: start: 201305, end: 20131209
  2. TOCILIZUMAB [Suspect]
     Dosage: REDUCED DOSAGE STARTED
     Route: 042
     Dates: start: 20140107, end: 20140107
  3. TOCILIZUMAB [Suspect]
     Route: 042
     Dates: start: 20131021
  4. TOCILIZUMAB [Suspect]
     Route: 042
     Dates: start: 20130722
  5. HEPARIN [Concomitant]

REACTIONS (17)
  - Cardiac failure [Unknown]
  - Pleural effusion [Unknown]
  - Ascites [Unknown]
  - Intraspinal abscess [Unknown]
  - Nausea [Recovering/Resolving]
  - Vomiting [Recovering/Resolving]
  - Back pain [Recovering/Resolving]
  - Intervertebral discitis [Recovered/Resolved]
  - Hypothyroidism [Unknown]
  - Umbilical hernia [Unknown]
  - General physical health deterioration [Recovering/Resolving]
  - Spinal osteoarthritis [Unknown]
  - Spinal osteoarthritis [Unknown]
  - Osteochondrosis [Unknown]
  - Gastritis [Unknown]
  - Disease progression [Unknown]
  - Restless legs syndrome [Unknown]
